FAERS Safety Report 5220631-9 (Version None)
Quarter: 2007Q1

REPORT INFORMATION
  Report Type: 
  Country: None (occurrence: None)
  Receive Date: 20070126
  Receipt Date: 20070122
  Transmission Date: 20070707
  Serious: Yes (Death, Other)
  Sender: FDA-Public Use
  Company Number: US-JNJFOC-20070106346

PATIENT
  Age: 55 Year
  Sex: Male

DRUGS (2)
  1. REOPRO [Suspect]
     Dosage: INFUSION
     Route: 042
  2. REOPRO [Suspect]
     Indication: ACUTE MYOCARDIAL INFARCTION
     Dosage: BOLUS
     Route: 042

REACTIONS (4)
  - DEATH [None]
  - EPISTAXIS [None]
  - HAEMOPTYSIS [None]
  - PULMONARY HAEMORRHAGE [None]
